FAERS Safety Report 8890357 (Version 4)
Quarter: 2013Q4

REPORT INFORMATION
  Report Type: Spontaneous
  Country: US (occurrence: US)
  Receive Date: 20121106
  Receipt Date: 20131118
  Transmission Date: 20140711
  Serious: Yes (Hospitalization, Other)
  Sender: FDA-Public Use
  Company Number: US-009507513-1202USA00811

PATIENT
  Sex: Female
  Weight: 57.6 kg

DRUGS (4)
  1. FOSAMAX [Suspect]
     Indication: OSTEOPOROSIS
     Dosage: 10 MG, QD
     Route: 048
     Dates: start: 20000801, end: 200201
  2. FOSAMAX [Suspect]
     Dosage: 70 UNK, UNK
     Route: 048
     Dates: start: 200201, end: 200612
  3. FOSAMAX [Suspect]
     Route: 048
     Dates: start: 2000, end: 2006
  4. VITAMINS (UNSPECIFIED) [Concomitant]
     Dosage: D3 500IU, CALCIUM 220MG
     Dates: start: 1997

REACTIONS (87)
  - Hip fracture [Unknown]
  - Intramedullary rod insertion [Unknown]
  - Renal transplant [Unknown]
  - Pulmonary embolism [Unknown]
  - Renal failure chronic [Not Recovered/Not Resolved]
  - Ileostomy [Unknown]
  - Colectomy [Not Recovered/Not Resolved]
  - Urinary tract infection [Unknown]
  - Convulsion [Unknown]
  - Respiratory tract inflammation [Unknown]
  - Abscess [Unknown]
  - Atelectasis [Not Recovered/Not Resolved]
  - Hypoxia [Recovered/Resolved]
  - Sepsis [Unknown]
  - Arteriovenous fistula operation [Unknown]
  - Thyroid operation [Unknown]
  - Humerus fracture [Recovered/Resolved]
  - Lung transplant [Unknown]
  - Spinal laminectomy [Unknown]
  - Adverse event [Unknown]
  - Essential hypertension [Unknown]
  - Wrist fracture [Unknown]
  - Haemodialysis [Not Recovered/Not Resolved]
  - Major depression [Not Recovered/Not Resolved]
  - Emphysema [Unknown]
  - Hypertrophic osteoarthropathy [Unknown]
  - Urinary tract infection [Unknown]
  - Fall [Unknown]
  - Fall [Unknown]
  - Contusion [Unknown]
  - Dyspnoea exertional [Recovering/Resolving]
  - Cough [Unknown]
  - Clostridium difficile colitis [Unknown]
  - Deep vein thrombosis [Unknown]
  - Chronic respiratory failure [Not Recovered/Not Resolved]
  - Arteriovenous graft [Unknown]
  - Pneumonia staphylococcal [Unknown]
  - Blood glucose increased [Unknown]
  - Fall [Unknown]
  - Joint injury [Unknown]
  - Limb injury [Unknown]
  - Contusion [Unknown]
  - Type 2 diabetes mellitus [Unknown]
  - Hyperparathyroidism [Unknown]
  - Orthostatic hypertension [Unknown]
  - Vena cava filter insertion [Unknown]
  - Blood potassium increased [Unknown]
  - Pain [Unknown]
  - Malnutrition [Unknown]
  - Exostosis [Unknown]
  - Blister [Unknown]
  - Aortic arteriosclerosis [Unknown]
  - Delirium [Unknown]
  - Cardiac failure congestive [Unknown]
  - Burning sensation [Unknown]
  - Atrial fibrillation [Unknown]
  - Pneumonia [Unknown]
  - Tachycardia [Recovered/Resolved]
  - Anaemia [Not Recovered/Not Resolved]
  - Subclavian artery thrombosis [Not Recovered/Not Resolved]
  - Aspergillus infection [Unknown]
  - Closed fracture manipulation [Unknown]
  - Calcinosis [Unknown]
  - Acute pulmonary oedema [Unknown]
  - Blood cholesterol [Unknown]
  - Anaemia [Unknown]
  - Skin infection [Unknown]
  - Paraesthesia [Unknown]
  - Pyrexia [Unknown]
  - Hypotension [Unknown]
  - Spinal osteoarthritis [Unknown]
  - Postoperative heterotopic calcification [Unknown]
  - Inappropriate schedule of drug administration [Unknown]
  - Osteoarthritis [Unknown]
  - Myositis ossificans [Unknown]
  - Exostosis [Unknown]
  - Exostosis [Unknown]
  - Abdominal pain lower [Unknown]
  - Musculoskeletal chest pain [Recovering/Resolving]
  - Back pain [Not Recovered/Not Resolved]
  - Nausea [Unknown]
  - Arthralgia [Unknown]
  - Gastrooesophageal reflux disease [Unknown]
  - Back pain [Unknown]
  - Retching [Unknown]
  - Nausea [Unknown]
  - Diarrhoea [Unknown]
